FAERS Safety Report 4959811-6 (Version None)
Quarter: 2006Q1

REPORT INFORMATION
  Report Type: 
  Country: None (occurrence: None)
  Receive Date: 20060324
  Receipt Date: 20060324
  Transmission Date: 20060701
  Serious: Yes (Hospitalization, Disabling)
  Sender: FDA-Public Use
  Company Number: HQWYE397317MAR06

PATIENT
  Age: 74 Year
  Sex: Female

DRUGS (6)
  1. CORDARONE [Suspect]
     Dosage: 200 MG 1X PER 1 DAY ORAL
     Route: 048
     Dates: start: 20030101, end: 20060101
  2. LEVOTHYROXINE SODIUM [Concomitant]
  3. ENALAPRIL MALEATE [Concomitant]
  4. BISOPROLOL FUMARATE AND HYDROCHLOROTHIAZIDE [Concomitant]
  5. ISCOVER        (CLOPIDOGREL SULFATE) [Concomitant]
  6. PANTOPRAZOLE SODIUM [Concomitant]

REACTIONS (4)
  - DRUG TOXICITY [None]
  - HEPATOTOXICITY [None]
  - POLYNEUROPATHY [None]
  - QUADRIPARESIS [None]
